FAERS Safety Report 5839456-6 (Version None)
Quarter: 2008Q3

REPORT INFORMATION
  Report Type: 
  Country: None (occurrence: None)
  Receive Date: 20080807
  Receipt Date: 20080728
  Transmission Date: 20090109
  Serious: Yes (Death)
  Sender: FDA-Public Use
  Company Number: 08P-167-0462751-00

PATIENT
  Sex: Male

DRUGS (7)
  1. SYNAGIS [Suspect]
     Indication: ANTIVIRAL PROPHYLAXIS
     Dosage: (65 MY, 1  IN 1 D) SUBCUTANEOUS
     Route: 058
     Dates: start: 20071121, end: 20071121
  2. SYNAGIS [Suspect]
     Indication: RESPIRATORY DISORDER
     Dosage: (65 MY, 1  IN 1 D) SUBCUTANEOUS
     Route: 058
     Dates: start: 20071121, end: 20071121
  3. RANITIDINE [Concomitant]
  4. DOMPERIDONE [Concomitant]
  5. CHLORAL HYDRATE [Concomitant]
  6. DIAZEPAM [Concomitant]
  7. LACTULOSE [Concomitant]

REACTIONS (3)
  - APALLIC SYNDROME [None]
  - MUSCLE SPASTICITY [None]
  - RESPIRATORY ARREST [None]
